FAERS Safety Report 7323846-9 (Version None)
Quarter: 2011Q1

REPORT INFORMATION
  Report Type: 
  Country: None (occurrence: None)
  Receive Date: 20110301
  Receipt Date: 20110221
  Transmission Date: 20110831
  Serious: Yes (Other)
  Sender: FDA-Public Use
  Company Number: A0914669A

PATIENT
  Age: 51 Year
  Sex: Male

DRUGS (3)
  1. ACTONEL [Concomitant]
  2. AVODART [Suspect]
     Indication: BENIGN PROSTATIC HYPERPLASIA
     Dosage: 1CAP PER DAY
     Route: 048
     Dates: start: 20091201, end: 20101201
  3. LISINOPRIL [Concomitant]

REACTIONS (2)
  - PANCREATIC ENZYMES INCREASED [None]
  - PANCREATITIS [None]
